FAERS Safety Report 7124140-1 (Version None)
Quarter: 2010Q4

REPORT INFORMATION
  Report Type: 
  Country: None (occurrence: None)
  Receive Date: 20101126
  Receipt Date: 20101115
  Transmission Date: 20110411
  Serious: Yes (Other)
  Sender: FDA-Public Use
  Company Number: PHHY2010DE29715

PATIENT
  Sex: Male

DRUGS (2)
  1. RASILEZ [Suspect]
     Dosage: 300 MG QD
     Route: 048
     Dates: start: 20091101
  2. IBUPROFEN [Concomitant]

REACTIONS (9)
  - ARTHRALGIA [None]
  - BLOOD IRON INCREASED [None]
  - DIABETES MELLITUS [None]
  - EFFUSION [None]
  - HAEMOCHROMATOSIS [None]
  - MOBILITY DECREASED [None]
  - OSTEOARTHRITIS [None]
  - SERUM FERRITIN INCREASED [None]
  - TRANSFERRIN SATURATION INCREASED [None]
